FAERS Safety Report 19314654 (Version 1)
Quarter: 2021Q2

REPORT INFORMATION
  Report Type: Spontaneous
  Country: US (occurrence: US)
  Receive Date: 20210527
  Receipt Date: 20210527
  Transmission Date: 20210717
  Serious: Yes (Other)
  Sender: FDA-Public Use
  Company Number: US-MYLANLABS-2021M1030854

PATIENT

DRUGS (1)
  1. GLIBENCLAMIDE [Suspect]
     Active Substance: GLYBURIDE
     Indication: CEREBRAL INFARCTION
     Dosage: 2.5 MILLIGRAM, BID
     Route: 048

REACTIONS (2)
  - Hypoglycaemia [Unknown]
  - Off label use [Unknown]
